FAERS Safety Report 16766974 (Version 1)
Quarter: 2019Q4

REPORT INFORMATION
  Report Type: Spontaneous
  Country: US (occurrence: US)
  Receive Date: 20190902
  Receipt Date: 20190902
  Transmission Date: 20200122
  Serious: Yes (Hospitalization)
  Sender: FDA-Public Use
  Company Number: None

PATIENT
  Age: 11 Year
  Sex: Male
  Weight: 36 kg

DRUGS (2)
  1. SINGULAIR [Suspect]
     Active Substance: MONTELUKAST SODIUM
     Indication: ASTHMA
     Route: 048
     Dates: start: 20170501, end: 20171115
  2. SINGULAIR [Suspect]
     Active Substance: MONTELUKAST SODIUM
     Indication: HYPERSENSITIVITY
     Route: 048
     Dates: start: 20170501, end: 20171115

REACTIONS (13)
  - Nervousness [None]
  - Impulsive behaviour [None]
  - Intentional self-injury [None]
  - Suicidal ideation [None]
  - Nightmare [None]
  - Insomnia [None]
  - Aggression [None]
  - Depression [None]
  - Anger [None]
  - Defiant behaviour [None]
  - Anxiety [None]
  - Mood swings [None]
  - Homicidal ideation [None]

NARRATIVE: CASE EVENT DATE: 20170501
